FAERS Safety Report 11371371 (Version 2)
Quarter: 2015Q3

REPORT INFORMATION
  Report Type: Report from Study
  Country: MX (occurrence: MX)
  Receive Date: 20150812
  Receipt Date: 20150812
  Transmission Date: 20151125
  Serious: Yes (Death, Hospitalization, Other)
  Sender: FDA-Public Use
  Company Number: PHHY2015MX094257

PATIENT
  Sex: Female

DRUGS (1)
  1. ULTIBRO BREEZHALER [Suspect]
     Active Substance: GLYCOPYRRONIUM\INDACATEROL
     Indication: CHRONIC OBSTRUCTIVE PULMONARY DISEASE
     Dosage: 1 DF, (100/50 UG)
     Route: 055

REACTIONS (7)
  - Gallbladder disorder [Unknown]
  - Pancreatic disorder [Unknown]
  - Hepatitis A [Unknown]
  - Disease complication [Unknown]
  - Death [Fatal]
  - Gastrointestinal haemorrhage [Unknown]
  - Liver disorder [Unknown]

NARRATIVE: CASE EVENT DATE: 20150507
